FAERS Safety Report 6132212-3 (Version None)
Quarter: 2009Q1

REPORT INFORMATION
  Report Type: 
  Country: None (occurrence: None)
  Receive Date: 20090325
  Receipt Date: 20090317
  Transmission Date: 20090719
  Serious: Yes (Hospitalization, Other)
  Sender: FDA-Public Use
  Company Number: US-ELI_LILLY_AND_COMPANY-US200903004698

PATIENT
  Sex: Male
  Weight: 76.19 kg

DRUGS (2)
  1. GEMZAR [Suspect]
     Indication: BILIARY CANCER METASTATIC
  2. CAPECITABINE [Concomitant]
     Indication: BILIARY CANCER METASTATIC
     Dosage: 1500 MG, 2/D
     Route: 048
     Dates: start: 20081201, end: 20090101

REACTIONS (5)
  - ASCITES [None]
  - DISEASE PROGRESSION [None]
  - NO THERAPEUTIC RESPONSE [None]
  - PULMONARY EMBOLISM [None]
  - THROMBOSIS [None]
